FAERS Safety Report 8149519-0 (Version None)
Quarter: 2012Q1

REPORT INFORMATION
  Report Type: 
  Country: None (occurrence: None)
  Receive Date: 20120218
  Receipt Date: 20120105
  Transmission Date: 20120608
  Serious: No
  Sender: FDA-Public Use
  Company Number: US-ALLERGAN-1114089US

PATIENT
  Age: 48 Year
  Sex: Female

DRUGS (4)
  1. BOTOX COSMETIC [Suspect]
     Dosage: 7.5 UNITS, SINGLE
     Route: 030
     Dates: start: 20111013, end: 20111013
  2. BLOOD PRESSURE MEDICATION UNSPECIFIED [Concomitant]
     Indication: PRODUCT USED FOR UNKNOWN INDICATION
     Dosage: UNK
  3. HORMONE MEDICATION UNSPECIFIED [Concomitant]
     Indication: PRODUCT USED FOR UNKNOWN INDICATION
     Dosage: UNK
  4. BOTOX COSMETIC [Suspect]
     Indication: SKIN WRINKLING
     Dosage: 10 UNITS, SINGLE
     Route: 030
     Dates: start: 20111007, end: 20111007

REACTIONS (2)
  - EYELID PTOSIS [None]
  - THERAPEUTIC RESPONSE DECREASED [None]
